FAERS Safety Report 15704009 (Version 2)
Quarter: 2018Q4

REPORT INFORMATION
  Report Type: Spontaneous
  Country: JP (occurrence: JP)
  Receive Date: 20181210
  Receipt Date: 20181221
  Transmission Date: 20190205
  Serious: Yes (Hospitalization)
  Sender: FDA-Public Use
  Company Number: JP-COLLEGIUM PHARMACEUTICAL, INC.-JP-2018COL014617

PATIENT
  Age: 79 Year
  Sex: Male

DRUGS (9)
  1. METHADONE HYDROCHLORIDE. [Concomitant]
     Active Substance: METHADONE HYDROCHLORIDE
     Indication: CANCER PAIN
     Dosage: UNK
     Dates: start: 201805, end: 2018
  2. TAPENTADOL EXTENDED RELEASE [Suspect]
     Active Substance: TAPENTADOL
     Indication: CANCER PAIN
     Dosage: 200 MG, QD
     Route: 048
     Dates: start: 20180706, end: 20180713
  3. DICLOFENAC SODIUM. [Concomitant]
     Active Substance: DICLOFENAC SODIUM
     Indication: CANCER PAIN
     Dosage: UNK
  4. ZOLPIDEM TARTRATE. [Concomitant]
     Active Substance: ZOLPIDEM TARTRATE
     Indication: PRODUCT USED FOR UNKNOWN INDICATION
     Dosage: UNK
  5. METHADONE HYDROCHLORIDE. [Concomitant]
     Active Substance: METHADONE HYDROCHLORIDE
     Dosage: UNK
     Dates: start: 2018
  6. MORPHINE HYDROCHLORIDE [Concomitant]
     Active Substance: MORPHINE HYDROCHLORIDE
     Indication: CANCER PAIN
     Dosage: UNK
     Dates: start: 2018
  7. PREGABALIN. [Concomitant]
     Active Substance: PREGABALIN
     Indication: CANCER PAIN
     Dosage: UNK
  8. OXYCODONE HYDROCHLORIDE. [Concomitant]
     Active Substance: OXYCODONE HYDROCHLORIDE
     Indication: CANCER PAIN
     Dosage: UNK
     Dates: start: 2018
  9. SUVOREXANT. [Concomitant]
     Active Substance: SUVOREXANT
     Indication: PRODUCT USED FOR UNKNOWN INDICATION
     Dosage: UNK

REACTIONS (2)
  - Dysphagia [Recovered/Resolved]
  - Delirium [Recovered/Resolved]

NARRATIVE: CASE EVENT DATE: 20180711
